FAERS Safety Report 7989042-7 (Version None)
Quarter: 2011Q4

REPORT INFORMATION
  Report Type: 
  Country: None (occurrence: None)
  Receive Date: 20111215
  Receipt Date: 20111215
  Transmission Date: 20120403
  Serious: Yes (Hospitalization)
  Sender: FDA-Public Use
  Company Number: None

PATIENT
  Sex: Male
  Weight: 125 kg

DRUGS (5)
  1. PEG-L-ASPRAGINASE (K-H) [Suspect]
     Dosage: 6325 IU
  2. VINCRISTINE SULFATE [Suspect]
     Dosage: 8 MG
  3. CYTARABINE [Suspect]
     Dosage: 70 MG
  4. DOXORUBICIN HCL [Suspect]
     Dosage: 251.7 MG
  5. METHOTREXATE [Suspect]
     Dosage: 15 MG

REACTIONS (8)
  - SEPSIS [None]
  - PELVIC ABSCESS [None]
  - BLOOD PRESSURE INCREASED [None]
  - DIVERTICULAR PERFORATION [None]
  - INTRACRANIAL VENOUS SINUS THROMBOSIS [None]
  - INTESTINAL PERFORATION [None]
  - BONE MARROW FAILURE [None]
  - WHITE BLOOD CELL COUNT DECREASED [None]
